FAERS Safety Report 14254411 (Version 2)
Quarter: 2018Q3

REPORT INFORMATION
  Report Type: Spontaneous
  Country: JP (occurrence: JP)
  Receive Date: 20171205
  Receipt Date: 20180716
  Transmission Date: 20181010
  Serious: Yes (Hospitalization, Other)
  Sender: FDA-Public Use
  Company Number: JP-CELGENEUS-JPN-20171003101

PATIENT
  Age: 39 Year
  Sex: Male
  Weight: 56 kg

DRUGS (17)
  1. LENADEX [Suspect]
     Active Substance: DEXAMETHASONE ACETATE
     Indication: PLASMA CELL MYELOMA
     Route: 048
     Dates: start: 20170804, end: 20170817
  2. LENADEX [Suspect]
     Active Substance: DEXAMETHASONE ACETATE
     Dosage: 20 MILLIGRAM
     Route: 048
     Dates: start: 20171005, end: 20171005
  3. BIO?THREE [Concomitant]
     Active Substance: HERBALS
     Indication: DIARRHOEA
     Dosage: 9 GRAM
     Route: 048
     Dates: start: 20170916
  4. SORBITOL. [Concomitant]
     Active Substance: SORBITOL
     Indication: PRODUCT USED FOR UNKNOWN INDICATION
     Dosage: UNKNOWN
     Route: 048
  5. REVLIMID [Suspect]
     Active Substance: LENALIDOMIDE
     Indication: PLASMA CELL MYELOMA
     Route: 048
     Dates: start: 20170804, end: 20170817
  6. FEBURIC [Concomitant]
     Active Substance: FEBUXOSTAT
     Indication: HYPERURICAEMIA
     Dosage: 60 MILLIGRAM
     Route: 048
     Dates: start: 20170805
  7. BORRAZA?G [Concomitant]
     Active Substance: LIDOCAINE\TRIBENOSIDE
     Indication: HAEMORRHOIDS
     Dosage: 4 UNKNOWN
     Route: 054
     Dates: start: 20170925
  8. REVLIMID [Suspect]
     Active Substance: LENALIDOMIDE
     Route: 048
     Dates: start: 20170828, end: 20170911
  9. BAYASPIRIN [Concomitant]
     Active Substance: ASPIRIN
     Indication: THROMBOSIS PROPHYLAXIS
     Dosage: 100 MILLIGRAM
     Route: 048
     Dates: start: 20170825
  10. POMALYST [Suspect]
     Active Substance: POMALIDOMIDE
     Indication: PLASMA CELL MYELOMA
     Dosage: 4 MILLIGRAM
     Route: 048
     Dates: start: 20171005, end: 20171006
  11. BORTEZOMIB. [Suspect]
     Active Substance: BORTEZOMIB
     Indication: PLASMA CELL MYELOMA
     Route: 065
     Dates: start: 20170804, end: 20170817
  12. LANSOPRAZOLE. [Concomitant]
     Active Substance: LANSOPRAZOLE
     Indication: PROPHYLAXIS AGAINST GASTROINTESTINAL ULCER
     Dosage: 15 MILLIGRAM
     Route: 048
     Dates: start: 20170805
  13. ITRIZOLE [Concomitant]
     Active Substance: ITRACONAZOLE
     Indication: INFECTION PROPHYLAXIS
     Dosage: 20 MILLILITER
     Route: 048
     Dates: start: 20171005
  14. LENADEX [Suspect]
     Active Substance: DEXAMETHASONE ACETATE
     Route: 048
     Dates: start: 20170828, end: 20170911
  15. IXAZOMIB [Concomitant]
     Active Substance: IXAZOMIB
     Indication: PLASMA CELL MYELOMA
     Route: 065
     Dates: start: 20170828, end: 20170911
  16. VALACICLOVIR [Concomitant]
     Active Substance: VALACYCLOVIR HYDROCHLORIDE
     Indication: INFECTION PROPHYLAXIS
     Dosage: 500 MILLIGRAM
     Route: 048
     Dates: start: 20171005
  17. ALFACALCIDOL [Concomitant]
     Active Substance: ALFACALCIDOL
     Indication: OSTEOPOROSIS PROPHYLAXIS
     Dosage: 1 MICROGRAM
     Route: 048
     Dates: start: 20170814

REACTIONS (9)
  - Sepsis [Unknown]
  - Lymphocyte count decreased [Recovered/Resolved]
  - Cholecystitis [Recovered/Resolved]
  - Drug reaction with eosinophilia and systemic symptoms [Recovering/Resolving]
  - Tumour lysis syndrome [Unknown]
  - Pneumonia [Recovered/Resolved]
  - Respiratory distress [Recovered/Resolved]
  - Cytomegalovirus infection [Recovered/Resolved]
  - White blood cell count decreased [Recovered/Resolved]

NARRATIVE: CASE EVENT DATE: 2017
